FAERS Safety Report 12670998 (Version 1)
Quarter: 2016Q3

REPORT INFORMATION
  Report Type: Spontaneous
  Country: US (occurrence: US)
  Receive Date: 20160822
  Receipt Date: 20160822
  Transmission Date: 20161109
  Serious: Yes (Other)
  Sender: FDA-Public Use
  Company Number: US-ACCORD-043347

PATIENT
  Age: 72 Year
  Sex: Male

DRUGS (1)
  1. FLUOROURACIL. [Suspect]
     Active Substance: FLUOROURACIL
     Indication: ACTINIC KERATOSIS
     Dosage: STRENGTH: 5% CREAM?TWICE A DAY FOR 3 WEEKS
     Route: 061

REACTIONS (5)
  - Rash erythematous [Recovered/Resolved]
  - Skin plaque [Recovered/Resolved]
  - Inflammation [Recovered/Resolved]
  - Scab [Recovered/Resolved]
  - Scleral hyperaemia [Recovered/Resolved]
